FAERS Safety Report 7114266-0 (Version None)
Quarter: 2010Q4

REPORT INFORMATION
  Report Type: 
  Country: None (occurrence: None)
  Receive Date: 20101119
  Receipt Date: 20101109
  Transmission Date: 20110411
  Serious: Yes (Hospitalization)
  Sender: FDA-Public Use
  Company Number: PHHO2007SE08268

PATIENT
  Sex: Female

DRUGS (2)
  1. ELIDEL [Suspect]
     Indication: DERMATITIS ATOPIC
     Dosage: APPLIED TWICE DAILY
     Route: 061
     Dates: end: 20041204
  2. CORTICOSTEROIDS [Concomitant]
     Indication: DERMATITIS ATOPIC
     Route: 061
     Dates: start: 20041204, end: 20041216

REACTIONS (2)
  - BLEPHARITIS [None]
  - CHRONIC SINUSITIS [None]
